FAERS Safety Report 8968152 (Version 2)
Quarter: 2012Q4

REPORT INFORMATION
  Report Type: 
  Country: CN (occurrence: CN)
  Receive Date: 20121217
  Receipt Date: 20121221
  Transmission Date: 20130627
  Serious: Yes (Other)
  Sender: FDA-Public Use
  Company Number: CN-PFIZER INC-2012315890

PATIENT
  Age: 80 Year
  Sex: Female

DRUGS (3)
  1. CEFOPERAZONE SODIUM [Suspect]
     Indication: CHOLECYSTITIS ACUTE
     Dosage: 4.0 g per day
  2. CEFOPERAZONE SODIUM [Suspect]
     Indication: CHOLELITHIASIS
  3. CEFOPERAZONE SODIUM [Suspect]
     Indication: PNEUMONIA

REACTIONS (1)
  - Renal failure [Recovered/Resolved]
